FAERS Safety Report 9302028 (Version 3)
Quarter: 2014Q2

REPORT INFORMATION
  Report Type: Spontaneous
  Country: US (occurrence: US)
  Receive Date: 20130521
  Receipt Date: 20140425
  Transmission Date: 20141212
  Serious: Yes (Death, Hospitalization)
  Sender: FDA-Public Use
  Company Number: US-B.I. PHARMACEUTICALS,INC./RIDGEFIELD-2013-BI-14223BP

PATIENT
  Sex: Male
  Weight: 104.33 kg

DRUGS (17)
  1. PRADAXA [Suspect]
     Indication: ATRIAL FIBRILLATION
     Dosage: 300 MG
     Route: 065
     Dates: start: 20110216, end: 20120115
  2. PREDNISONE [Concomitant]
     Route: 065
     Dates: start: 201101
  3. IPRAT-ALBUT [Concomitant]
     Route: 065
     Dates: end: 2012
  4. VENTOLIN [Concomitant]
     Route: 065
     Dates: end: 2012
  5. HYDROCODONE [Concomitant]
     Route: 065
     Dates: end: 2012
  6. LISINOPRIL [Concomitant]
     Dosage: 20 MG
     Route: 065
     Dates: end: 2012
  7. PRAVASTATIN [Concomitant]
     Dosage: 40 MG
     Route: 065
     Dates: end: 2012
  8. LASIX [Concomitant]
     Dosage: 40 MG
     Route: 065
     Dates: end: 2012
  9. CARVEDILOL [Concomitant]
     Route: 065
     Dates: end: 2012
  10. OMEPRAZOLE [Concomitant]
     Dosage: 40 MG
     Route: 065
     Dates: end: 2012
  11. ALPRAZOLAM [Concomitant]
     Route: 065
     Dates: end: 2012
  12. GABAPENTIN [Concomitant]
     Dosage: 900 MG
     Route: 065
  13. ADVAIR [Concomitant]
     Route: 065
  14. SPIRIVA [Concomitant]
     Route: 065
  15. LANOXIN [Concomitant]
     Dosage: 125 MCG
     Route: 065
  16. LABETALOL [Concomitant]
     Route: 065
  17. COMBIVENT [Concomitant]
     Route: 065

REACTIONS (4)
  - Lower gastrointestinal haemorrhage [Fatal]
  - Coagulopathy [Fatal]
  - Acute respiratory failure [Fatal]
  - Pulseless electrical activity [Fatal]
